FAERS Safety Report 18842387 (Version 1)
Quarter: 2021Q1

REPORT INFORMATION
  Report Type: Spontaneous
  Country: US (occurrence: US)
  Receive Date: 20210203
  Receipt Date: 20210203
  Transmission Date: 20210419
  Serious: Yes (Death, Hospitalization)
  Sender: FDA-Public Use
  Company Number: None

PATIENT
  Age: 76 Year
  Sex: Male
  Weight: 89 kg

DRUGS (6)
  1. LEVOFLOXACIN. [Concomitant]
     Active Substance: LEVOFLOXACIN
     Dates: start: 20201108
  2. TECARTUS [Suspect]
     Active Substance: BREXUCABTAGENE AUTOLEUCEL
     Indication: MANTLE CELL LYMPHOMA
     Dosage: ?          OTHER FREQUENCY:ONCE;?
     Route: 042
     Dates: start: 20201109, end: 20201109
  3. BENDAMUSTINE [Concomitant]
     Active Substance: BENDAMUSTINE
  4. FLUCONAZOLE. [Concomitant]
     Active Substance: FLUCONAZOLE
     Dates: start: 20201108
  5. ACYCLOVIR. [Concomitant]
     Active Substance: ACYCLOVIR
     Dates: start: 20201108
  6. BACTRIM [Concomitant]
     Active Substance: SULFAMETHOXAZOLE\TRIMETHOPRIM
     Dates: start: 20201109

REACTIONS (11)
  - Dysphagia [None]
  - Confusional state [None]
  - COVID-19 [None]
  - Pancytopenia [None]
  - Hypofibrinogenaemia [None]
  - Neurotoxicity [None]
  - Malnutrition [None]
  - Disease complication [None]
  - Cytokine release syndrome [None]
  - Delirium [None]
  - Aspiration [None]

NARRATIVE: CASE EVENT DATE: 20201109
